FAERS Safety Report 7561175-9 (Version None)
Quarter: 2011Q2

REPORT INFORMATION
  Report Type: 
  Country: None (occurrence: None)
  Receive Date: 20110621
  Receipt Date: 20100917
  Transmission Date: 20111010
  Serious: No
  Sender: FDA-Public Use
  Company Number: US-ASTRAZENECA-2010SE43997

PATIENT
  Age: 69 Year
  Sex: Female

DRUGS (2)
  1. PULMICORT FLEXHALER [Suspect]
     Indication: ASTHMA
     Dosage: 180 MCG BID
     Route: 055
  2. PULMICORT FLEXHALER [Suspect]
     Dosage: 360 MCG ONE PUFF BID
     Route: 055

REACTIONS (1)
  - PULMONARY FUNCTION TEST ABNORMAL [None]
